FAERS Safety Report 13945871 (Version 1)
Quarter: 2017Q3

REPORT INFORMATION
  Report Type: Spontaneous
  Country: US (occurrence: US)
  Receive Date: 20170907
  Receipt Date: 20170907
  Transmission Date: 20171128
  Serious: No
  Sender: FDA-Public Use
  Company Number: US-BAYER-2017-166198

PATIENT
  Age: 78 Year
  Sex: Female
  Weight: 66 kg

DRUGS (7)
  1. CLARITIN [Suspect]
     Active Substance: LORATADINE
     Indication: NASOPHARYNGITIS
  2. CRANBERRY EXTRACT [Concomitant]
     Active Substance: CRANBERRY JUICE
     Dosage: UNK
  3. BAYER ASPIRIN [Concomitant]
     Active Substance: ASPIRIN
     Indication: PAIN
     Dosage: UNK UNK, PRN
  4. CHONDROITIN W/GLUCOSAMINE [Concomitant]
     Dosage: UNK
  5. CLARITIN [Suspect]
     Active Substance: LORATADINE
     Indication: HYPERSENSITIVITY
     Dosage: 1 DF, ONCE (1 TEASPOON)
     Route: 048
     Dates: start: 2015
  6. MULTIVITAMINS [Concomitant]
     Active Substance: VITAMINS
     Dosage: UNK
  7. LOSARTAN. [Concomitant]
     Active Substance: LOSARTAN
     Dosage: UNK

REACTIONS (3)
  - Drug ineffective [Unknown]
  - Product use issue [None]
  - Incorrect dose administered [Unknown]

NARRATIVE: CASE EVENT DATE: 2015
